FAERS Safety Report 6767718-7 (Version None)
Quarter: 2010Q2

REPORT INFORMATION
  Report Type: 
  Country: None (occurrence: None)
  Receive Date: 20100614
  Receipt Date: 20100607
  Transmission Date: 20101027
  Serious: Yes (Disabling)
  Sender: FDA-Public Use
  Company Number: CA-ASTRAZENECA-2010SE26587

PATIENT
  Sex: Male
  Weight: 89.4 kg

DRUGS (3)
  1. CRESTOR [Suspect]
     Route: 048
  2. ATACAND [Concomitant]
     Route: 048
  3. NORVASC [Concomitant]

REACTIONS (2)
  - GAIT DISTURBANCE [None]
  - MYALGIA [None]
